FAERS Safety Report 7277508-7 (Version None)
Quarter: 2011Q1

REPORT INFORMATION
  Report Type: 
  Country: None (occurrence: None)
  Receive Date: 20110207
  Receipt Date: 20110124
  Transmission Date: 20110831
  Serious: Yes (Other)
  Sender: FDA-Public Use
  Company Number: US-ELI_LILLY_AND_COMPANY-US201101005316

PATIENT
  Sex: Female

DRUGS (8)
  1. FORTEO [Suspect]
     Indication: OSTEOPOROSIS
     Dosage: 20 UG, DAILY (1/D)
     Dates: start: 20110113
  2. VITAMIN D [Concomitant]
     Dosage: UNK, UNKNOWN
     Route: 065
  3. LEVOTHYROXINE [Concomitant]
  4. FOLIC ACID [Concomitant]
  5. CALCIUM [Concomitant]
     Dosage: UNK, UNKNOWN
     Route: 065
  6. ZONISAMIDE [Concomitant]
  7. LYRICA [Concomitant]
  8. MYSOLINE [Concomitant]

REACTIONS (9)
  - GAIT DISTURBANCE [None]
  - DIZZINESS [None]
  - INJECTION SITE HAEMATOMA [None]
  - EPILEPSY [None]
  - LOSS OF CONSCIOUSNESS [None]
  - URINARY INCONTINENCE [None]
  - ARTHRALGIA [None]
  - DIPLOPIA [None]
  - MEMORY IMPAIRMENT [None]
